FAERS Safety Report 9933320 (Version 1)
Quarter: 2014Q1

REPORT INFORMATION
  Report Type: Spontaneous
  Country: US (occurrence: US)
  Receive Date: 20140228
  Receipt Date: 20140228
  Transmission Date: 20141002
  Serious: Yes (Other)
  Sender: FDA-Public Use
  Company Number: US-MYLANLABS-2013S1004767

PATIENT
  Sex: Female

DRUGS (3)
  1. AMNESTEEM CAPSULES [Suspect]
     Dates: start: 20071022, end: 200807
  2. ACCUTANE [Suspect]
     Dates: start: 20071022, end: 200807
  3. SOTRET [Suspect]
     Dates: start: 20071022, end: 200807

REACTIONS (1)
  - Gastrointestinal hypermotility [Not Recovered/Not Resolved]
